FAERS Safety Report 12948340 (Version 1)
Quarter: 2016Q4

REPORT INFORMATION
  Report Type: Spontaneous
  Country: CN (occurrence: CN)
  Receive Date: 20161116
  Receipt Date: 20161116
  Transmission Date: 20170207
  Serious: Yes (Other)
  Sender: FDA-Public Use
  Company Number: CN-BAYER-2016-217678

PATIENT
  Age: 78 Year
  Sex: Male

DRUGS (2)
  1. GLUCOBAY [Suspect]
     Active Substance: ACARBOSE
     Dosage: 1 DF, TID AFTER MEALS
  2. INSULIN [Concomitant]
     Active Substance: INSULIN NOS
     Dosage: 15 IN THE MORNING AND 14 IN THE EVENING

REACTIONS (1)
  - Protein urine present [Not Recovered/Not Resolved]

NARRATIVE: CASE EVENT DATE: 2016
